FAERS Safety Report 12047907 (Version 1)
Quarter: 2016Q1

REPORT INFORMATION
  Report Type: Report from Study
  Country: US (occurrence: US)
  Receive Date: 20160209
  Receipt Date: 20160209
  Transmission Date: 20160526
  Serious: Yes (Death, Hospitalization)
  Sender: FDA-Public Use
  Company Number: US-ROCHE-425630

PATIENT
  Age: 62 Year
  Sex: Male
  Weight: 46.3 kg

DRUGS (4)
  1. BEVACIZUMAB [Suspect]
     Active Substance: BEVACIZUMAB
     Indication: NON-SMALL CELL LUNG CANCER
     Dosage: OVER 90 MIN ON DAY 1 AND OVER 60 MIN ON DAY 15?MOST RECENT DOSE: 05/OCT/2005
     Route: 042
  2. ERLOTINIB [Suspect]
     Active Substance: ERLOTINIB
     Indication: NON-SMALL CELL LUNG CANCER
     Dosage: DAYS 1 TO 28?MOST RECENT DOSE: 06/OCT/2005
     Route: 048
  3. CETUXIMAB [Suspect]
     Active Substance: CETUXIMAB
     Indication: NON-SMALL CELL LUNG CANCER
     Dosage: OVER 120 MIN ON DAY 1
     Route: 042
     Dates: start: 20051005
  4. CETUXIMAB [Suspect]
     Active Substance: CETUXIMAB
     Dosage: OVER 60 MIN ON DAYS 8,15 AND 22
     Route: 042
     Dates: start: 20051005

REACTIONS (2)
  - Pneumothorax [Recovered/Resolved]
  - Death [Fatal]

NARRATIVE: CASE EVENT DATE: 20051006
